FAERS Safety Report 10086585 (Version 4)
Quarter: 2014Q2

REPORT INFORMATION
  Report Type: Spontaneous
  Country: JP (occurrence: JP)
  Receive Date: 20140418
  Receipt Date: 20140502
  Transmission Date: 20141212
  Serious: Yes (Death)
  Sender: FDA-Public Use
  Company Number: JP-BAXTER-2014BAX019146

PATIENT
  Age: 35 Year
  Sex: Male

DRUGS (14)
  1. IFOSFAMIDE FOR INJECTION [Suspect]
     Indication: LYMPHOMA
     Route: 041
     Dates: start: 20140404, end: 20140406
  2. UROMITEXAN 400 MG [Suspect]
     Indication: CYSTITIS HAEMORRHAGIC
     Route: 041
     Dates: start: 20140404, end: 20140406
  3. CELLTOP 100 MG/5 ML, SOLUTION INJECTABLE POUR PERFUSION [Suspect]
     Indication: LYMPHOMA
     Route: 041
     Dates: start: 20140404, end: 20140406
  4. METHOTREXATE [Suspect]
     Indication: LYMPHOMA
     Route: 041
     Dates: start: 20140403, end: 20140403
  5. L-ASPARAGINASE [Suspect]
     Indication: LYMPHOMA
     Route: 065
  6. PIRESPA [Suspect]
     Indication: PRODUCT USED FOR UNKNOWN INDICATION
     Route: 065
  7. DEXAMETHASONE [Concomitant]
     Indication: LYMPHOMA
     Route: 041
  8. DEXAMETHASONE [Concomitant]
     Indication: TOXIC EPIDERMAL NECROLYSIS
     Route: 042
     Dates: start: 20140407
  9. GRANISETRON [Concomitant]
     Indication: PRODUCT USED FOR UNKNOWN INDICATION
     Route: 065
  10. LEUCOVORIN [Concomitant]
     Indication: TOXICITY TO VARIOUS AGENTS
     Route: 041
     Dates: start: 20140403, end: 20140405
  11. DORIPENEM HYDRATE [Concomitant]
     Indication: BACTERIAL INFECTION
     Route: 041
     Dates: start: 20140312, end: 20140410
  12. DORIPENEM HYDRATE [Concomitant]
     Route: 042
     Dates: start: 20140407
  13. VANCOMYCIN HYDROCHLORIDE [Concomitant]
     Indication: BACTERIAL INFECTION
     Route: 041
     Dates: start: 20140323, end: 20140410
  14. VANCOMYCIN HYDROCHLORIDE [Concomitant]
     Route: 042
     Dates: start: 20140407

REACTIONS (3)
  - Toxic epidermal necrolysis [Unknown]
  - Lymphoma [Fatal]
  - Malignant neoplasm progression [Fatal]
